FAERS Safety Report 10358535 (Version 2)
Quarter: 2014Q3

REPORT INFORMATION
  Report Type: Spontaneous
  Country: US (occurrence: US)
  Receive Date: 20140801
  Receipt Date: 20140801
  Transmission Date: 20150326
  Serious: Yes (Hospitalization, Other)
  Sender: FDA-Public Use
  Company Number: US-009507513-2009SP023295

PATIENT
  Sex: Female
  Weight: 97.7 kg

DRUGS (8)
  1. NUVARING [Suspect]
     Active Substance: ETHINYL ESTRADIOL\ETONOGESTREL
     Indication: HEADACHE
  2. HEPARIN [Suspect]
     Active Substance: HEPARIN SODIUM
     Indication: ANTICOAGULANT THERAPY
  3. NUVARING [Suspect]
     Active Substance: ETHINYL ESTRADIOL\ETONOGESTREL
     Indication: MIGRAINE
  4. TYLENOL [Concomitant]
     Active Substance: ACETAMINOPHEN
     Indication: SLEEP DISORDER THERAPY
     Dosage: TWICE A WEEK OR NIGHTLY
     Dates: start: 2007
  5. FROVA [Concomitant]
     Active Substance: FROVATRIPTAN SUCCINATE
     Dosage: OCCASIONAL
     Dates: start: 2007
  6. NUVARING [Suspect]
     Active Substance: ETHINYL ESTRADIOL\ETONOGESTREL
     Indication: CONTRACEPTION
     Dosage: 1 DF, UNK
     Route: 067
     Dates: start: 20060109, end: 20060620
  7. NUVARING [Suspect]
     Active Substance: ETHINYL ESTRADIOL\ETONOGESTREL
     Indication: MENOPAUSAL SYMPTOMS
     Dates: end: 200707
  8. ALTEPLASE [Suspect]
     Active Substance: ALTEPLASE
     Indication: ANTICOAGULANT THERAPY

REACTIONS (11)
  - Nephrolithiasis [Recovered/Resolved]
  - Pneumonia [Unknown]
  - Pulmonary embolism [Recovered/Resolved]
  - Deep vein thrombosis [Recovered/Resolved]
  - Abdominal wall haematoma [Unknown]
  - Peripheral swelling [Recovered/Resolved]
  - Gastrooesophageal reflux disease [Unknown]
  - Anxiety [Unknown]
  - Inappropriate schedule of drug administration [Recovered/Resolved]
  - Gallbladder disorder [Unknown]
  - Hypokalaemia [Unknown]

NARRATIVE: CASE EVENT DATE: 20060109
